FAERS Safety Report 11465100 (Version 4)
Quarter: 2015Q4

REPORT INFORMATION
  Report Type: Spontaneous
  Country: US (occurrence: US)
  Receive Date: 20150907
  Receipt Date: 20151030
  Transmission Date: 20160304
  Serious: Yes (Hospitalization, Other)
  Sender: FDA-Public Use
  Company Number: US-PFIZER INC-2015210225

PATIENT
  Age: 48 Year
  Sex: Female

DRUGS (8)
  1. LYRICA [Suspect]
     Active Substance: PREGABALIN
     Indication: SCIATICA
  2. CYMBALTA [Concomitant]
     Active Substance: DULOXETINE HYDROCHLORIDE
     Dosage: 30 MG, 1X/DAY
  3. TRAZODONE [Concomitant]
     Active Substance: TRAZODONE HYDROCHLORIDE
     Dosage: 25 MG, UNK
  4. LYRICA [Suspect]
     Active Substance: PREGABALIN
     Indication: BACK PAIN
     Dosage: 150 MG, 2X/DAY (ONE IN THE MORNING AND ONE AT NIGHT)
     Route: 048
     Dates: start: 20130625
  5. LYRICA [Suspect]
     Active Substance: PREGABALIN
     Indication: FIBROMYALGIA
  6. METOPROLOL [Concomitant]
     Active Substance: METOPROLOL
     Indication: HYPERTENSION
     Dosage: 50 MG, 2X/DAY
  7. VALIUM [Concomitant]
     Active Substance: DIAZEPAM
     Dosage: 9 OR 10 MG, AS NEEDED
  8. LYRICA [Suspect]
     Active Substance: PREGABALIN
     Indication: ARTHRALGIA

REACTIONS (11)
  - Weight increased [Unknown]
  - Amnesia [Unknown]
  - Breast disorder [Unknown]
  - Depressed mood [Unknown]
  - Incoherent [Unknown]
  - Limb discomfort [Unknown]
  - Mental disorder [Unknown]
  - Pain [Unknown]
  - Product use issue [Unknown]
  - Victim of sexual abuse [Unknown]
  - Sedation [Unknown]

NARRATIVE: CASE EVENT DATE: 201508
